FAERS Safety Report 6102503-0 (Version None)
Quarter: 2009Q1

REPORT INFORMATION
  Report Type: 
  Country: None (occurrence: None)
  Receive Date: 20090304
  Receipt Date: 20081112
  Transmission Date: 20090719
  Serious: No
  Sender: FDA-Public Use
  Company Number: A0607157A

PATIENT

DRUGS (9)
  1. REQUIP [Suspect]
     Indication: RESTLESS LEGS SYNDROME
     Dosage: 1TAB PER DAY
     Route: 048
     Dates: end: 20080101
  2. ROPINIROLE [Suspect]
     Indication: RESTLESS LEGS SYNDROME
     Dosage: 1MG PER DAY
     Route: 048
     Dates: start: 20080101
  3. CYMBALTA [Suspect]
     Indication: RESTLESS LEGS SYNDROME
     Dosage: 30MG UNKNOWN
     Route: 048
     Dates: start: 20070101, end: 20080101
  4. ASPIRIN [Concomitant]
     Indication: RESTLESS LEGS SYNDROME
     Dosage: 4TAB PER DAY
  5. DARVOCET [Concomitant]
     Indication: RESTLESS LEGS SYNDROME
     Dosage: 4TAB PER DAY
  6. THYROXINE [Concomitant]
  7. CYTOMEL [Concomitant]
  8. PROZAC [Concomitant]
  9. GABAPENTIN [Concomitant]

REACTIONS (5)
  - DIZZINESS [None]
  - GASTRIC DISORDER [None]
  - ILL-DEFINED DISORDER [None]
  - NAUSEA [None]
  - TREATMENT NONCOMPLIANCE [None]
